FAERS Safety Report 21573855 (Version 1)
Quarter: 2022Q4

REPORT INFORMATION
  Report Type: Spontaneous
  Country: US (occurrence: US)
  Receive Date: 20221109
  Receipt Date: 20221109
  Transmission Date: 20230112
  Serious: No
  Sender: FDA-Public Use
  Company Number: US-MYLANLABS-2022M1118218

PATIENT
  Sex: Female
  Weight: 90.72 kg

DRUGS (1)
  1. AZELASTINE HYDROCHLORIDE\FLUTICASONE PROPIONATE [Suspect]
     Active Substance: AZELASTINE HYDROCHLORIDE\FLUTICASONE PROPIONATE
     Indication: Seasonal allergy
     Dosage: 137/50 MCG, BID
     Route: 045

REACTIONS (3)
  - Skin exfoliation [Unknown]
  - Hypersensitivity [Unknown]
  - Drug ineffective [Unknown]
